FAERS Safety Report 4515363-6 (Version None)
Quarter: 2004Q4

REPORT INFORMATION
  Report Type: 
  Country: None (occurrence: None)
  Receive Date: 20041126
  Receipt Date: 20041112
  Transmission Date: 20050328
  Serious: Yes (Hospitalization)
  Sender: FDA-Public Use
  Company Number: 207750

PATIENT
  Age: 38 Year
  Sex: Female

DRUGS (15)
  1. AVONEX [Suspect]
     Indication: MULTIPLE SCLEROSIS
     Dosage: 30 UG; QW; IM
     Route: 030
     Dates: start: 20040918
  2. AMBIEN [Concomitant]
  3. POTASSIUM [Concomitant]
  4. LASIX [Concomitant]
  5. SPIRONOLACTONE [Concomitant]
  6. DOCUSATE [Concomitant]
  7. QUININE [Concomitant]
  8. VICOPROFEN [Concomitant]
  9. CHLORZOXAZONE [Concomitant]
  10. MAGNESIUM [Concomitant]
  11. RANITIDINE [Concomitant]
  12. BISACODYL [Concomitant]
  13. ZAROXOLYN [Concomitant]
  14. BACLOFEN [Concomitant]
  15. NEURONTIN [Concomitant]

REACTIONS (5)
  - ABNORMAL BEHAVIOUR [None]
  - BLOOD POTASSIUM DECREASED [None]
  - FATIGUE [None]
  - MULTIPLE SCLEROSIS RELAPSE [None]
  - MUSCLE CRAMP [None]
